FAERS Safety Report 11016249 (Version 2)
Quarter: 2015Q2

REPORT INFORMATION
  Report Type: Spontaneous
  Country: US (occurrence: US)
  Receive Date: 20150412
  Receipt Date: 20150525
  Transmission Date: 20150821
  Serious: No
  Sender: FDA-Public Use
  Company Number: US-JNJFOC-20140211540

PATIENT
  Age: 34 Year
  Sex: Female
  Weight: 63.5 kg

DRUGS (2)
  1. BALSALAZIDE SODIUM [Concomitant]
     Active Substance: BALSALAZIDE
     Indication: COLITIS ULCERATIVE
     Route: 048
     Dates: start: 201312
  2. SIMPONI [Suspect]
     Active Substance: GOLIMUMAB
     Indication: COLITIS ULCERATIVE
     Route: 058
     Dates: start: 201312

REACTIONS (4)
  - Device malfunction [Unknown]
  - Drug dose omission [Unknown]
  - Accidental exposure to product [Unknown]
  - Product physical issue [Unknown]

NARRATIVE: CASE EVENT DATE: 20140218
